FAERS Safety Report 13093388 (Version 3)
Quarter: 2017Q1

REPORT INFORMATION
  Report Type: Spontaneous
  Country: US (occurrence: US)
  Receive Date: 20170106
  Receipt Date: 20170227
  Transmission Date: 20170428
  Serious: Yes (Other)
  Sender: FDA-Public Use
  Company Number: US-ASTRAZENECA-2017SE01635

PATIENT
  Age: 829 Month
  Sex: Female
  Weight: 110.2 kg

DRUGS (9)
  1. ALPRAZOLAM. [Concomitant]
     Active Substance: ALPRAZOLAM
     Indication: STRESS
     Dosage: 25 MG TWICE A DAY
     Route: 048
  2. LYNPARZA [Suspect]
     Active Substance: OLAPARIB
     Indication: OVARIAN CANCER
     Route: 048
     Dates: start: 201610, end: 201611
  3. LYNPARZA [Suspect]
     Active Substance: OLAPARIB
     Indication: OVARIAN CANCER
     Route: 048
     Dates: start: 201611, end: 201612
  4. HYDROCODONE [Concomitant]
     Active Substance: HYDROCODONE
     Indication: PAIN
     Dosage: 7.5 MG, ONE TO TWO TIMES A DAY
     Route: 048
     Dates: start: 2011
  5. ANASTROZOLE. [Suspect]
     Active Substance: ANASTROZOLE
     Indication: OVARIAN CANCER
     Route: 048
     Dates: start: 201512, end: 201612
  6. LYNPARZA [Suspect]
     Active Substance: OLAPARIB
     Indication: OVARIAN CANCER
     Route: 048
     Dates: start: 201612, end: 20170220
  7. TAMOXIFEN [Suspect]
     Active Substance: TAMOXIFEN
     Indication: NEOPLASM MALIGNANT
     Dosage: DAILY
     Route: 048
     Dates: start: 201610
  8. LISINOPRIL. [Suspect]
     Active Substance: LISINOPRIL
     Indication: BLOOD PRESSURE MEASUREMENT
     Route: 048
     Dates: start: 201607
  9. EXEMESTANE. [Concomitant]
     Active Substance: EXEMESTANE

REACTIONS (16)
  - Dyspnoea [Unknown]
  - Asthenia [Unknown]
  - Pruritus [Unknown]
  - Stress [Unknown]
  - Malaise [Unknown]
  - Rash macular [Unknown]
  - Cough [Unknown]
  - Blood pressure abnormal [Unknown]
  - Off label use [Unknown]
  - Circumstance or information capable of leading to medication error [Unknown]
  - Product use issue [Unknown]
  - Malignant neoplasm progression [Unknown]
  - Swelling face [Unknown]
  - Nausea [Unknown]
  - Intentional product misuse [Unknown]
  - Dry mouth [Unknown]

NARRATIVE: CASE EVENT DATE: 201612
